FAERS Safety Report 8956117 (Version 1)
Quarter: 2012Q4

REPORT INFORMATION
  Report Type: 
  Country: US (occurrence: US)
  Receive Date: 20121210
  Receipt Date: 20121210
  Transmission Date: 20130627
  Serious: No
  Sender: FDA-Public Use
  Company Number: US-009507513-1212USA001744

PATIENT
  Age: 41 Year
  Sex: Female

DRUGS (2)
  1. CLARITIN [Suspect]
     Indication: HYPERSENSITIVITY
     Dosage: 10 mg, Once
     Route: 048
     Dates: start: 20121116
  2. ZZZQUIL [Concomitant]
     Indication: POOR QUALITY SLEEP
     Dosage: 50 mg, Unknown
     Route: 048

REACTIONS (1)
  - Nausea [Recovering/Resolving]
